FAERS Safety Report 9695369 (Version 1)
Quarter: 2013Q4

REPORT INFORMATION
  Report Type: Spontaneous
  Country: GB (occurrence: GB)
  Receive Date: 20131119
  Receipt Date: 20131119
  Transmission Date: 20140711
  Serious: Yes (Other)
  Sender: FDA-Public Use
  Company Number: GB-TEVA-444777ISR

PATIENT
  Age: 40 Year
  Sex: Female

DRUGS (3)
  1. PROVIGIL [Suspect]
     Route: 065
     Dates: start: 201310, end: 20131029
  2. PROVIGIL [Suspect]
     Route: 065
     Dates: start: 20131029, end: 20131104
  3. CITALOPRAM [Concomitant]
     Route: 065

REACTIONS (3)
  - Angioedema [Unknown]
  - Swollen tongue [Unknown]
  - Paraesthesia oral [Unknown]
